FAERS Safety Report 9617795 (Version 1)
Quarter: 2013Q4

REPORT INFORMATION
  Report Type: Spontaneous
  Country: IT (occurrence: None)
  Receive Date: 20131009
  Receipt Date: 20131009
  Transmission Date: 20140711
  Serious: Yes (Other)
  Sender: FDA-Public Use
  Company Number: IT-MACLEODS PHARMA-000143

PATIENT
  Sex: 0
  Weight: 2 kg

DRUGS (2)
  1. ESCITALOPRAM (ESCITALOPRAM) [Suspect]
     Indication: PANIC DISORDER
     Route: 064
  2. ALPRAZOLAM (ALPRAZOLAM) [Suspect]
     Route: 064

REACTIONS (2)
  - Maternal drugs affecting foetus [None]
  - Low birth weight baby [None]
